FAERS Safety Report 8724818 (Version 2)
Quarter: 2015Q2

REPORT INFORMATION
  Report Type: Report from Study
  Country: US (occurrence: US)
  Receive Date: 20120815
  Receipt Date: 20150625
  Transmission Date: 20150821
  Serious: Yes (Other)
  Sender: FDA-Public Use
  Company Number: US-ROCHE-1100521

PATIENT
  Age: 58 Year
  Sex: Female

DRUGS (3)
  1. ACTIVASE [Suspect]
     Active Substance: ALTEPLASE
     Indication: ACUTE MYOCARDIAL INFARCTION
     Route: 065
  2. HEPARIN [Concomitant]
     Active Substance: HEPARIN SODIUM
     Route: 042
  3. MORPHINE [Concomitant]
     Active Substance: MORPHINE

REACTIONS (3)
  - Postinfarction angina [Unknown]
  - Muscle spasms [Unknown]
  - Blood pressure increased [Unknown]

NARRATIVE: CASE EVENT DATE: 19911008
